FAERS Safety Report 7592832-6 (Version None)
Quarter: 2011Q3

REPORT INFORMATION
  Report Type: 
  Country: None (occurrence: None)
  Receive Date: 20110706
  Receipt Date: 20110704
  Transmission Date: 20111222
  Serious: No
  Sender: FDA-Public Use
  Company Number: US-PFIZER INC-2011149500

PATIENT
  Sex: Female
  Weight: 43.537 kg

DRUGS (1)
  1. ADVIL LIQUI-GELS [Suspect]
     Dosage: UNK, 3X/DAY
     Dates: start: 20110629

REACTIONS (2)
  - RASH PRURITIC [None]
  - LIP BLISTER [None]
